FAERS Safety Report 8605345-7 (Version None)
Quarter: 2012Q3

REPORT INFORMATION
  Report Type: 
  Country: None (occurrence: None)
  Receive Date: 20120820
  Receipt Date: 20120806
  Transmission Date: 20120928
  Serious: No
  Sender: FDA-Public Use
  Company Number: US-BAYER-2012-080926

PATIENT
  Age: 51 Year
  Sex: Male
  Weight: 155 kg

DRUGS (5)
  1. NAPROXEN (ALEVE) [Suspect]
     Indication: ARTHRITIS
     Dosage: 2 DF, QD
     Route: 048
     Dates: start: 20120805, end: 20120806
  2. JANUVIA [Concomitant]
  3. OXYCONTIN [Concomitant]
  4. METFORMIN HCL [Concomitant]
  5. NAPROXEN (ALEVE) [Suspect]
     Indication: ARTHRITIS
     Dosage: 2 DF, UNK
     Route: 048
     Dates: start: 20070101, end: 20120804

REACTIONS (2)
  - NO ADVERSE EVENT [None]
  - ARTHRITIS [None]
